FAERS Safety Report 20432421 (Version 1)
Quarter: 2022Q1

REPORT INFORMATION
  Report Type: Spontaneous
  Country: US (occurrence: US)
  Receive Date: 20220204
  Receipt Date: 20220204
  Transmission Date: 20220423
  Serious: No
  Sender: FDA-Public Use
  Company Number: US-JNJFOC-20220149666

PATIENT
  Age: 63 Year
  Sex: Female
  Weight: 65.830 kg

DRUGS (5)
  1. TOPAMAX [Suspect]
     Active Substance: TOPIRAMATE
     Indication: Seizure
     Route: 048
  2. TOPAMAX [Suspect]
     Active Substance: TOPIRAMATE
     Route: 048
  3. AMLODIPINE [Concomitant]
     Active Substance: AMLODIPINE BESYLATE
     Indication: Hypertension
     Route: 065
  4. LISINOPRIL [Concomitant]
     Active Substance: LISINOPRIL
     Indication: Hypertension
     Route: 065
  5. TEGRETOL [Concomitant]
     Active Substance: CARBAMAZEPINE
     Route: 065

REACTIONS (1)
  - Drug level below therapeutic [Unknown]

NARRATIVE: CASE EVENT DATE: 20211201
